FAERS Safety Report 23643981 (Version 1)
Quarter: 2024Q1

REPORT INFORMATION
  Report Type: Spontaneous
  Country: US (occurrence: US)
  Receive Date: 20240318
  Receipt Date: 20240318
  Transmission Date: 20240410
  Serious: No
  Sender: FDA-Public Use
  Company Number: US-BAYER-2024A032108

PATIENT
  Sex: Female

DRUGS (1)
  1. MIRALAX [Suspect]
     Active Substance: POLYETHYLENE GLYCOL 3350
     Indication: Gastrointestinal disorder
     Dosage: 1 DF, QD (2 TEASPOONS IN A GLASS OF JUICE DOSE)
     Route: 048

REACTIONS (2)
  - Abdominal discomfort [Recovering/Resolving]
  - Wrong technique in product usage process [Recovering/Resolving]
